FAERS Safety Report 14218052 (Version 1)
Quarter: 2017Q4

REPORT INFORMATION
  Report Type: Spontaneous
  Country: US (occurrence: US)
  Receive Date: 20171123
  Receipt Date: 20171123
  Transmission Date: 20180321
  Serious: No
  Sender: FDA-Public Use
  Company Number: US-ALVOGEN-2017-ALVOGEN-093132

PATIENT
  Age: 70 Year
  Sex: Male
  Weight: 79.55 kg

DRUGS (1)
  1. FENTANYL. [Suspect]
     Active Substance: FENTANYL
     Indication: SPINAL PAIN
     Route: 062
     Dates: start: 20170804

REACTIONS (3)
  - Application site pruritus [Not Recovered/Not Resolved]
  - Application site burn [Not Recovered/Not Resolved]
  - Rubber sensitivity [Not Recovered/Not Resolved]

NARRATIVE: CASE EVENT DATE: 2017
